FAERS Safety Report 11137944 (Version 1)
Quarter: 2015Q2

REPORT INFORMATION
  Report Type: Spontaneous
  Country: US (occurrence: US)
  Receive Date: 20150526
  Receipt Date: 20150526
  Transmission Date: 20150821
  Serious: No
  Sender: FDA-Public Use
  Company Number: US-MALLINCKRODT-T201404465

PATIENT
  Sex: Male

DRUGS (1)
  1. H.P. ACTHAR [Suspect]
     Active Substance: CORTICOTROPIN
     Indication: NEPHROTIC SYNDROME
     Dosage: 80 UNITS BIWEEKLY
     Route: 065
     Dates: start: 20141121

REACTIONS (7)
  - Abdominal distension [Unknown]
  - Weight increased [Unknown]
  - Dyspnoea [Unknown]
  - Contusion [Unknown]
  - Fatigue [Unknown]
  - International normalised ratio increased [Unknown]
  - Pruritus [Unknown]
